FAERS Safety Report 17431131 (Version 1)
Quarter: 2020Q1

REPORT INFORMATION
  Report Type: Spontaneous
  Country: US (occurrence: US)
  Receive Date: 20200218
  Receipt Date: 20200218
  Transmission Date: 20200409
  Serious: Yes (Other)
  Sender: FDA-Public Use
  Company Number: US-GW PHARMA-202002USGW00559

PATIENT

DRUGS (3)
  1. DEPAKENE [Interacting]
     Active Substance: VALPROIC ACID
     Indication: PRODUCT USED FOR UNKNOWN INDICATION
     Dosage: UNK
     Route: 065
  2. EPIDIOLEX [Suspect]
     Active Substance: CANNABIDIOL
     Indication: PRODUCT USED FOR UNKNOWN INDICATION
     Dosage: 90 MILLIGRAM, BID
     Route: 048
     Dates: start: 202002, end: 202002
  3. EPIDIOLEX [Interacting]
     Active Substance: CANNABIDIOL
     Dosage: 180 MILLIGRAM, BID
     Route: 048
     Dates: start: 202002

REACTIONS (2)
  - Generalised tonic-clonic seizure [Unknown]
  - Drug interaction [Unknown]

NARRATIVE: CASE EVENT DATE: 202002
